FAERS Safety Report 13390060 (Version 1)
Quarter: 2017Q1

REPORT INFORMATION
  Report Type: Spontaneous
  Country: US (occurrence: US)
  Receive Date: 20170331
  Receipt Date: 20170331
  Transmission Date: 20170429
  Serious: No
  Sender: FDA-Public Use
  Company Number: PHHY2017US045605

PATIENT
  Age: 94 Year
  Sex: Female

DRUGS (3)
  1. DICLOFENAC SODIUM. [Suspect]
     Active Substance: DICLOFENAC SODIUM
     Indication: LIGAMENT SPRAIN
  2. WARFARIN [Concomitant]
     Active Substance: WARFARIN
     Indication: PRODUCT USED FOR UNKNOWN INDICATION
     Route: 065
  3. DICLOFENAC SODIUM. [Suspect]
     Active Substance: DICLOFENAC SODIUM
     Indication: ARTHRITIS
     Route: 061
     Dates: start: 201703

REACTIONS (6)
  - Drug ineffective for unapproved indication [Unknown]
  - Therapeutic response unexpected [Unknown]
  - Drug administered at inappropriate site [Unknown]
  - Off label use [Unknown]
  - Wrong technique in product usage process [Unknown]
  - Incorrect dose administered [Unknown]
